FAERS Safety Report 6392458-6 (Version None)
Quarter: 2009Q4

REPORT INFORMATION
  Report Type: 
  Country: None (occurrence: None)
  Receive Date: 20091007
  Receipt Date: 20090928
  Transmission Date: 20100525
  Serious: Yes (Life-Threatening, Other)
  Sender: FDA-Public Use
  Company Number: NL-AMGEN-US363343

PATIENT
  Age: 57 Year
  Sex: Male
  Weight: 85 kg

DRUGS (4)
  1. ENBREL [Suspect]
     Indication: RHEUMATOID ARTHRITIS
     Dosage: 50 MG ONCE A WEEK FROM UNK DATE TO DEC-2005, THEN 50 MG EVERY 10 DAYS UNTILL 02-JUL-2009
     Route: 058
     Dates: end: 20090702
  2. METOPROLOL [Concomitant]
     Indication: HYPERTENSION
     Route: 065
  3. CLOMIPRAMINE [Concomitant]
     Indication: PSYCHOTIC DISORDER
     Route: 065
  4. COZAAR [Concomitant]
     Indication: HYPERTENSION
     Route: 065

REACTIONS (3)
  - BRAIN INJURY [None]
  - DIPLEGIA [None]
  - LUNG CANCER METASTATIC [None]
